FAERS Safety Report 22230868 (Version 14)
Quarter: 2024Q3

REPORT INFORMATION
  Report Type: Spontaneous
  Country: CA (occurrence: CA)
  Receive Date: 20230420
  Receipt Date: 20240827
  Transmission Date: 20241016
  Serious: Yes (Hospitalization, Other)
  Sender: CELLTRION
  Company Number: CA-CELLTRION INC.-2022CA016330

PATIENT

DRUGS (13)
  1. INFLECTRA [Suspect]
     Active Substance: INFLIXIMAB-DYYB
     Indication: Crohn^s disease
     Dosage: 5 MG/KG, WEEKS 0,2, 6, THEN Q8 WEEKS ROUNDED TO THE NEAREST VIAL
     Route: 042
     Dates: start: 20220830
  2. INFLECTRA [Suspect]
     Active Substance: INFLIXIMAB-DYYB
     Dosage: 5 MG/KG, 0, 2, 6, THEN Q 8 WEEKS
     Route: 042
     Dates: start: 20220921
  3. INFLECTRA [Suspect]
     Active Substance: INFLIXIMAB-DYYB
     Dosage: 5 MG/KG, 0, 2, 6, THEN Q 8 WEEKS
     Route: 042
     Dates: start: 20221013
  4. INFLECTRA [Suspect]
     Active Substance: INFLIXIMAB-DYYB
     Dosage: 5 MG/KG, 0, 2, 6, THEN Q 8 WEEKS
     Route: 042
     Dates: start: 20221209
  5. INFLECTRA [Suspect]
     Active Substance: INFLIXIMAB-DYYB
     Dosage: 370 MG (5 MG/KG) W0,W2,W6 THEN Q 8 WEEKS
     Route: 042
     Dates: start: 20230220
  6. INFLECTRA [Suspect]
     Active Substance: INFLIXIMAB-DYYB
     Dosage: 355MG (5MG/KG), Q8 WEEKS
     Route: 042
     Dates: start: 20230418
  7. INFLECTRA [Suspect]
     Active Substance: INFLIXIMAB-DYYB
     Dosage: 400 MG AFTER 12WKS (SUPPOSED TO RECEIVED 5 MG/KG WKS 0,2, 6, THEN Q8WKSROUNDED TO THE NEAREST VIAL)
     Route: 042
     Dates: start: 20230713
  8. INFLECTRA [Suspect]
     Active Substance: INFLIXIMAB-DYYB
     Dosage: 400 MG, EVERY 8 WEEKS
     Route: 042
     Dates: start: 20230907
  9. INFLECTRA [Suspect]
     Active Substance: INFLIXIMAB-DYYB
     Dosage: 5 MG/KG EVERY 8 WEEKS (400MG, 8 WEEKS AND 1 DAY)
     Route: 042
     Dates: start: 20231103
  10. INFLECTRA [Suspect]
     Active Substance: INFLIXIMAB-DYYB
     Dosage: 5 MG/KG, WEEKS 0,2, 6, THEN Q8WEEKSROUNDED TO THE NEAREST VIAL (400 MG, 8 WEEKS)
     Route: 042
     Dates: start: 20231229
  11. INFLECTRA [Suspect]
     Active Substance: INFLIXIMAB-DYYB
     Dosage: 5 MG/KG, WEEKS 0,2, 6, THEN Q8WEEKSROUNDED TO THE NEAREST VIAL (400MG AFTER 8 WEEKS)
     Route: 042
     Dates: start: 20240223
  12. INFLECTRA [Suspect]
     Active Substance: INFLIXIMAB-DYYB
     Dosage: 5 MG/KG, WEEKS 0,2, 6, THEN Q8WEEKSROUNDED TO THE NEAREST VIAL
     Route: 042
     Dates: start: 20240614
  13. INFLECTRA [Suspect]
     Active Substance: INFLIXIMAB-DYYB
     Dosage: 400 MG, 8 WEEKS (5 MG/KG, WEEKS 0,2, 6, THEN Q8WEEKS ROUNDED TO THE NEAREST VIAL)
     Route: 042
     Dates: start: 20240809

REACTIONS (21)
  - Intestinal operation [Recovered/Resolved]
  - Condition aggravated [Recovered/Resolved]
  - Vomiting [Not Recovered/Not Resolved]
  - Nausea [Not Recovered/Not Resolved]
  - Back pain [Not Recovered/Not Resolved]
  - Influenza [Recovered/Resolved]
  - Bronchitis [Recovered/Resolved]
  - Therapeutic response shortened [Unknown]
  - Asthenia [Not Recovered/Not Resolved]
  - Feeding disorder [Unknown]
  - Anxiety [Not Recovered/Not Resolved]
  - Wound [Recovered/Resolved]
  - Discouragement [Not Recovered/Not Resolved]
  - Chills [Not Recovered/Not Resolved]
  - Gastrooesophageal reflux disease [Not Recovered/Not Resolved]
  - Blood albumin decreased [Unknown]
  - Serum ferritin decreased [Unknown]
  - COVID-19 [Recovered/Resolved]
  - Fatigue [Unknown]
  - Off label use [Unknown]
  - Intentional product use issue [Unknown]

NARRATIVE: CASE EVENT DATE: 20220101
